FAERS Safety Report 22275866 (Version 1)
Quarter: 2023Q2

REPORT INFORMATION
  Report Type: Spontaneous
  Country: US (occurrence: US)
  Receive Date: 20230502
  Receipt Date: 20230502
  Transmission Date: 20230721
  Serious: No
  Sender: FDA-Public Use
  Company Number: US-009507513-2304USA003786

PATIENT
  Age: 50 Year
  Sex: Female

DRUGS (2)
  1. POSACONAZOLE [Suspect]
     Active Substance: POSACONAZOLE
     Indication: Prophylaxis
     Route: 048
  2. TERBINAFINE [Concomitant]
     Active Substance: TERBINAFINE

REACTIONS (1)
  - Product use in unapproved indication [Unknown]
